FAERS Safety Report 10159156 (Version 1)
Quarter: 2014Q2

REPORT INFORMATION
  Report Type: Spontaneous
  Country: US (occurrence: None)
  Receive Date: 20140507
  Receipt Date: 20140507
  Transmission Date: 20141212
  Serious: No
  Sender: FDA-Public Use
  Company Number: None

PATIENT
  Age: 55 Year
  Sex: Female
  Weight: 106.4 kg

DRUGS (1)
  1. DOCETAXEL [Suspect]
     Indication: NEOPLASM MALIGNANT
     Route: 058
     Dates: start: 20140313, end: 20140313

REACTIONS (5)
  - Dysphagia [None]
  - Angioedema [None]
  - Dysphonia [None]
  - Dyspnoea [None]
  - Infusion related reaction [None]
